FAERS Safety Report 23266626 (Version 1)
Quarter: 2023Q4

REPORT INFORMATION
  Report Type: Report from Study
  Country: GB (occurrence: GB)
  Receive Date: 20231206
  Receipt Date: 20231206
  Transmission Date: 20240110
  Serious: Yes (Other)
  Sender: FDA-Public Use
  Company Number: GB-BAYER-2023A174289

PATIENT
  Age: 79 Year
  Sex: Male

DRUGS (1)
  1. GADOBUTROL [Suspect]
     Active Substance: GADOBUTROL
     Dosage: UNK UNK, ONCE
     Route: 037

REACTIONS (4)
  - Vomiting [None]
  - Abdominal discomfort [None]
  - Metabolic acidosis [None]
  - Off label use [None]
